FAERS Safety Report 6181101-7 (Version None)
Quarter: 2009Q2

REPORT INFORMATION
  Report Type: 
  Country: None (occurrence: None)
  Receive Date: 20090504
  Receipt Date: 20090504
  Transmission Date: 20091009
  Serious: No
  Sender: FDA-Public Use
  Company Number: None

PATIENT
  Age: 51 Year
  Sex: Female
  Weight: 77.1115 kg

DRUGS (2)
  1. PAROXETINE HCL [Suspect]
     Indication: ANTIDEPRESSANT THERAPY
     Dosage: 10MG  1X PER DAY PO
     Route: 048
     Dates: start: 20090422, end: 20090501
  2. PAROXETINE HCL [Suspect]
     Indication: ANXIETY
     Dosage: 10MG  1X PER DAY PO
     Route: 048
     Dates: start: 20090422, end: 20090501

REACTIONS (3)
  - HEADACHE [None]
  - NAUSEA [None]
  - PRODUCT SUBSTITUTION ISSUE [None]
